FAERS Safety Report 9646240 (Version 1)
Quarter: 2013Q4

REPORT INFORMATION
  Report Type: Spontaneous
  Country: FR (occurrence: FR)
  Receive Date: 20131025
  Receipt Date: 20131025
  Transmission Date: 20140711
  Serious: Yes (Other)
  Sender: FDA-Public Use
  Company Number: FR-MYLANLABS-2013S1023087

PATIENT
  Age: 9 Month
  Sex: Male
  Weight: 7.24 kg

DRUGS (2)
  1. VANCOMYCINE [Suspect]
     Indication: WRONG DRUG ADMINISTERED
     Route: 042
     Dates: start: 20130906, end: 20130906
  2. PARACETAMOL [Concomitant]
     Route: 048

REACTIONS (3)
  - Wrong drug administered [Recovered/Resolved]
  - Red man syndrome [Recovered/Resolved]
  - Renal failure acute [Recovered/Resolved]
